FAERS Safety Report 9830571 (Version 3)
Quarter: 2014Q2

REPORT INFORMATION
  Report Type: Report from Study
  Country: US (occurrence: US)
  Receive Date: 20140120
  Receipt Date: 20140403
  Transmission Date: 20141212
  Serious: Yes (Other)
  Sender: FDA-Public Use
  Company Number: US-NOVOPROD-396036

PATIENT
  Age: 2 Year
  Sex: Female
  Weight: 8.7 kg

DRUGS (2)
  1. NORDITROPIN FLEXPRO 3.3 MG/ML [Suspect]
     Indication: GROWTH HORMONE DEFICIENCY
     Dosage: 0.3 MG, QD, (0.24 MG/KG/WEEK)
     Route: 058
     Dates: start: 20131024
  2. NORDITROPIN FLEXPRO 3.3 MG/ML [Suspect]
     Dosage: 0.2 MG, QD
     Route: 058

REACTIONS (2)
  - Intraocular pressure increased [Unknown]
  - Intracranial pressure increased [Unknown]
